FAERS Safety Report 15035248 (Version 1)
Quarter: 2018Q2

REPORT INFORMATION
  Report Type: Spontaneous
  Country: US (occurrence: US)
  Receive Date: 20180620
  Receipt Date: 20180620
  Transmission Date: 20180711
  Serious: No
  Sender: FDA-Public Use
  Company Number: US-AUROBINDO-AUR-APL-2018-020411

PATIENT
  Sex: Male

DRUGS (1)
  1. ATOMOXETINE CAPSULES USP 25 MG [Suspect]
     Active Substance: ATOMOXETINE
     Indication: PRODUCT USED FOR UNKNOWN INDICATION
     Route: 065

REACTIONS (4)
  - Nervousness [Unknown]
  - Heart rate increased [Unknown]
  - Abdominal discomfort [Unknown]
  - Tremor [Unknown]
